FAERS Safety Report 13594166 (Version 4)
Quarter: 2017Q3

REPORT INFORMATION
  Report Type: Spontaneous
  Country: US (occurrence: US)
  Receive Date: 20170530
  Receipt Date: 20170919
  Transmission Date: 20171127
  Serious: No
  Sender: FDA-Public Use
  Company Number: US-PFIZER INC-2017236684

PATIENT
  Age: 63 Year
  Sex: Female

DRUGS (1)
  1. IBRANCE [Suspect]
     Active Substance: PALBOCICLIB
     Indication: NEOPLASM MALIGNANT
     Dosage: 125 MG, CYCLIC (TAKE 1 CAPSULE BY MOUTH ONCE DAILY WITH FOOD FOR 21 DAYS, FOLLOWED BY 7 DAYS OFF)
     Route: 048
     Dates: start: 20170510, end: 201708

REACTIONS (6)
  - Fatigue [Unknown]
  - Nausea [Unknown]
  - Neutrophil count decreased [Unknown]
  - Neuropathy peripheral [Not Recovered/Not Resolved]
  - Neoplasm progression [Unknown]
  - Disease recurrence [Unknown]

NARRATIVE: CASE EVENT DATE: 201705
